FAERS Safety Report 9169147 (Version 2)
Quarter: 2013Q1

REPORT INFORMATION
  Report Type: Spontaneous
  Country: FR (occurrence: FR)
  Receive Date: 20130318
  Receipt Date: 20130322
  Transmission Date: 20140127
  Serious: Yes (Hospitalization)
  Sender: FDA-Public Use
  Company Number: FR-PFIZER INC-2013082811

PATIENT
  Age: 63 Year
  Sex: Female

DRUGS (10)
  1. DALACINE [Suspect]
     Dosage: 900 MG, 3X/DAY
     Route: 041
     Dates: start: 20130206, end: 20130213
  2. TIENAM [Suspect]
     Dosage: 500 MG/500 MG, (ALSO REPORTED AS 1 G TWICE DAILY)
     Route: 041
     Dates: start: 20130204, end: 20130213
  3. VANCOMYCIN [Suspect]
     Dosage: 1 G, 2X/DAY
     Route: 041
     Dates: start: 20130204, end: 20130213
  4. AMIKLIN [Concomitant]
     Dosage: UNK
     Dates: start: 20130204, end: 20130206
  5. CALCIPARIN [Concomitant]
     Dosage: UNK
     Dates: start: 20130204
  6. SKENAN [Concomitant]
     Dosage: UNK
  7. ACTISKENAN [Concomitant]
     Dosage: UNK
  8. DUPHALAC [Concomitant]
     Dosage: UNK
  9. DI-HYDAN [Concomitant]
     Dosage: UNK
  10. GARDENAL [Concomitant]
     Dosage: UNK

REACTIONS (2)
  - Rash maculo-papular [Recovered/Resolved]
  - Pyrexia [Recovered/Resolved]
